FAERS Safety Report 9610367 (Version 2)
Quarter: 2013Q4

REPORT INFORMATION
  Report Type: Spontaneous
  Country: US (occurrence: US)
  Receive Date: 20131009
  Receipt Date: 20131009
  Transmission Date: 20140711
  Serious: No
  Sender: FDA-Public Use
  Company Number: US-PURDUE-USA-2012-0096067

PATIENT
  Sex: Female

DRUGS (1)
  1. BUTRANS [Suspect]
     Indication: BACK PAIN
     Dosage: 20 MCG, WEEKLY
     Route: 062

REACTIONS (6)
  - Application site scar [Recovered/Resolved]
  - Application site rash [Unknown]
  - Application site erythema [Unknown]
  - Drug ineffective [Unknown]
  - Application site irritation [Unknown]
  - Pain [Unknown]
